FAERS Safety Report 20120079 (Version 1)
Quarter: 2021Q4

REPORT INFORMATION
  Report Type: Spontaneous
  Country: US (occurrence: US)
  Receive Date: 20211126
  Receipt Date: 20211126
  Transmission Date: 20220303
  Serious: Yes (Other)
  Sender: FDA-Public Use
  Company Number: US-PFIZER INC-202101578533

PATIENT

DRUGS (1)
  1. HYDROXYZINE PAMOATE [Suspect]
     Active Substance: HYDROXYZINE PAMOATE
     Dosage: UNK

REACTIONS (5)
  - Hemianaesthesia [Unknown]
  - Hemiplegia [Unknown]
  - Somnolence [Unknown]
  - Pruritus [Unknown]
  - Depression [Unknown]

NARRATIVE: CASE EVENT DATE: 20210408
